FAERS Safety Report 8544513-X (Version None)
Quarter: 2012Q3

REPORT INFORMATION
  Report Type: 
  Country: None (occurrence: None)
  Receive Date: 20120727
  Receipt Date: 20120720
  Transmission Date: 20120928
  Serious: Yes (Hospitalization)
  Sender: FDA-Public Use
  Company Number: FR-BAXTER-2012BAX012029

PATIENT
  Sex: Male

DRUGS (13)
  1. AMSALYO [Suspect]
     Indication: BONE MARROW CONDITIONING REGIMEN
     Dosage: 100 MG/M2
     Route: 042
     Dates: start: 20120512, end: 20120515
  2. BUSULFAN [Suspect]
     Indication: BONE MARROW CONDITIONING REGIMEN
     Dosage: 0.8 MG/KG
     Route: 042
     Dates: start: 20120520, end: 20120521
  3. THYMOGLOBULIN [Suspect]
     Route: 042
     Dates: start: 20120524, end: 20120524
  4. GRANOCYTE [Concomitant]
     Route: 042
     Dates: start: 20120512, end: 20120515
  5. CYCLOPHOSPHAMIDE [Suspect]
     Indication: BONE MARROW CONDITIONING REGIMEN
     Dosage: 60 MG/KG
     Route: 042
     Dates: start: 20120519, end: 20120519
  6. CYTARABINE [Suspect]
     Indication: BONE MARROW CONDITIONING REGIMEN
     Dosage: 1000 MG/M2
     Route: 042
     Dates: start: 20120512, end: 20120515
  7. FLUDARABINE PHOSPHATE [Suspect]
     Indication: BONE MARROW CONDITIONING REGIMEN
     Dosage: 30 MG/M2
     Route: 042
     Dates: start: 20120512, end: 20120515
  8. CIPROFLOXACIN HYDROCHLORIDE [Concomitant]
     Route: 065
  9. THYMOGLOBULIN [Suspect]
     Indication: BONE MARROW CONDITIONING REGIMEN
     Route: 042
     Dates: start: 20120522, end: 20120522
  10. THYMOGLOBULIN [Suspect]
     Route: 042
     Dates: start: 20120523, end: 20120523
  11. IMIPENEM AND CILASTATIN SODIUM [Concomitant]
     Route: 065
  12. BACTRIM [Concomitant]
     Route: 048
  13. VIDAZA [Concomitant]
     Route: 065
     Dates: end: 20120102

REACTIONS (1)
  - VENOOCCLUSIVE DISEASE [None]
